FAERS Safety Report 25401423 (Version 1)
Quarter: 2025Q2

REPORT INFORMATION
  Report Type: Spontaneous
  Country: JP (occurrence: JP)
  Receive Date: 20250605
  Receipt Date: 20250605
  Transmission Date: 20250717
  Serious: Yes (Other)
  Sender: PFIZER
  Company Number: JP-PFIZER INC-PV202500066079

PATIENT
  Age: 83 Year
  Sex: Male
  Weight: 58 kg

DRUGS (1)
  1. TAFAMIDIS [Suspect]
     Active Substance: TAFAMIDIS
     Dosage: 61 MG, DAILY
     Route: 048

REACTIONS (1)
  - Atrial fibrillation [Recovered/Resolved]
